FAERS Safety Report 12591878 (Version 1)
Quarter: 2016Q3

REPORT INFORMATION
  Report Type: Spontaneous
  Country: US (occurrence: None)
  Receive Date: 20160725
  Receipt Date: 20160725
  Transmission Date: 20161109
  Serious: Yes (Disabling)
  Sender: FDA-Public Use
  Company Number: None

PATIENT
  Age: 55 Year
  Sex: Male
  Weight: 92.99 kg

DRUGS (7)
  1. LEVAQUIN [Suspect]
     Active Substance: LEVOFLOXACIN
     Indication: SINUSITIS
     Route: 048
     Dates: start: 20110303, end: 20110310
  2. COREG/CARVEDILOL [Concomitant]
  3. HIP IMPLANT [Concomitant]
  4. ASPIRIN. [Concomitant]
     Active Substance: ASPIRIN
  5. AVELOX [Suspect]
     Active Substance: MOXIFLOXACIN HYDROCHLORIDE
     Indication: SINUSITIS
     Route: 048
     Dates: start: 20110418, end: 20110427
  6. DAILY MEN^S VITAMIN [Concomitant]
  7. AMLODIPINE [Concomitant]
     Active Substance: AMLODIPINE BESYLATE

REACTIONS (15)
  - Contraindicated product administered [None]
  - Drug prescribing error [None]
  - Activities of daily living impaired [None]
  - Osteonecrosis [None]
  - Colitis ulcerative [None]
  - Paranoia [None]
  - Aphasia [None]
  - Anxiety [None]
  - Grip strength decreased [None]
  - Memory impairment [None]
  - Gastrointestinal disorder [None]
  - Tendon rupture [None]
  - Sleep disorder [None]
  - Cognitive disorder [None]
  - Small fibre neuropathy [None]

NARRATIVE: CASE EVENT DATE: 20110428
